FAERS Safety Report 21949807 (Version 1)
Quarter: 2023Q1

REPORT INFORMATION
  Report Type: Spontaneous
  Country: US (occurrence: None)
  Receive Date: 20230202
  Receipt Date: 20230202
  Transmission Date: 20230418
  Serious: Yes (Other)
  Sender: FDA-Public Use
  Company Number: None

PATIENT
  Age: 41 Year
  Sex: Female
  Weight: 69.75 kg

DRUGS (1)
  1. DEXTROAMPHET SACCHARAT, AMPHET ASPARTATE, DEXTROAMPHET SULFATE AND AMP [Suspect]
     Active Substance: AMPHETAMINE ASPARTATE\AMPHETAMINE SULFATE\DEXTROAMPHETAMINE SACCHARATE\DEXTROAMPHETAMINE SULFATE
     Indication: Attention deficit hyperactivity disorder
     Dosage: FREQUENCY : TWICE A DAY;?
     Route: 048
     Dates: start: 20230123, end: 20230202

REACTIONS (10)
  - Product physical issue [None]
  - Drug ineffective [None]
  - Headache [None]
  - Lethargy [None]
  - Somnolence [None]
  - Impaired driving ability [None]
  - Job dissatisfaction [None]
  - Therapeutic response shortened [None]
  - Therapy cessation [None]
  - Drug level below therapeutic [None]

NARRATIVE: CASE EVENT DATE: 20230202
